FAERS Safety Report 5118801-3 (Version None)
Quarter: 2006Q3

REPORT INFORMATION
  Report Type: 
  Country: None (occurrence: None)
  Receive Date: 20060927
  Receipt Date: 20060913
  Transmission Date: 20061208
  Serious: Yes (Hospitalization, Other)
  Sender: FDA-Public Use
  Company Number: TRP_0811_2006

PATIENT
  Age: 39 Year
  Sex: Female

DRUGS (19)
  1. RIBASPHERE [Suspect]
     Indication: HEPATITIS C
     Dosage: 600 MG QDAY PO
     Route: 048
     Dates: start: 20060428
  2. RIBASPHERE [Suspect]
     Indication: HEPATITIS C
     Dosage: 300 MG QDAY PO
     Route: 048
     Dates: start: 20060101
  3. AMITRIPTYLINE HYDROCLORIDE [Concomitant]
  4. BENZTROPINE MESYLATE [Concomitant]
  5. COREG [Concomitant]
  6. PEG-INTRON [Suspect]
     Indication: HEPATITIS C
     Dosage: 0.5 ML QWK SC
     Route: 058
     Dates: start: 20060428
  7. PEG-INTRON [Suspect]
     Indication: HEPATITIS C
     Dosage: 0.4 ML QWK SC
     Route: 058
     Dates: start: 20060101
  8. CYMBALTA [Concomitant]
  9. GABITRIL FILMTAB [Concomitant]
  10. LITHIUM CARBONATE EXTENDED RELEASE [Concomitant]
  11. PERPHENAZINE [Concomitant]
  12. POTASSIUM CHLORIDE [Concomitant]
  13. PROMETHAZINE HCL [Concomitant]
  14. PROPRANOLOL HYDROCHLORIDE [Concomitant]
  15. TOPAMAX [Concomitant]
  16. TOPROL-XL [Concomitant]
  17. TRAZODONE HCL [Concomitant]
  18. ASPIRIN [Concomitant]
  19. FLAGYL [Concomitant]

REACTIONS (13)
  - ALOPECIA [None]
  - AORTIC VALVE DISEASE [None]
  - BLOOD POTASSIUM DECREASED [None]
  - CONVULSION [None]
  - DEHYDRATION [None]
  - FATIGUE [None]
  - HAEMOGLOBIN DECREASED [None]
  - INJECTION SITE ERYTHEMA [None]
  - PNEUMONIA [None]
  - PULMONARY OEDEMA [None]
  - TREATMENT NONCOMPLIANCE [None]
  - VOMITING [None]
  - WHITE BLOOD CELL COUNT DECREASED [None]
